FAERS Safety Report 6357305-7 (Version None)
Quarter: 2009Q3

REPORT INFORMATION
  Report Type: 
  Country: None (occurrence: None)
  Receive Date: 20090916
  Receipt Date: 20090909
  Transmission Date: 20100115
  Serious: Yes (Hospitalization, Other)
  Sender: FDA-Public Use
  Company Number: PHHY2009FR20935

PATIENT
  Age: 17 Year
  Sex: Female

DRUGS (1)
  1. VOLTAREN [Suspect]
     Indication: INJURY
     Dosage: UNK
     Dates: start: 20090301, end: 20090301

REACTIONS (10)
  - ABDOMINAL PAIN [None]
  - DIET REFUSAL [None]
  - INTERSTITIAL LUNG DISEASE [None]
  - NAUSEA [None]
  - NEUTROPHIL COUNT INCREASED [None]
  - PELVIC FLUID COLLECTION [None]
  - PLEURAL EFFUSION [None]
  - RESPIRATORY DEPRESSION [None]
  - SEPTIC SHOCK [None]
  - VOMITING [None]
